FAERS Safety Report 9351845 (Version 1)
Quarter: 2013Q2

REPORT INFORMATION
  Report Type: Spontaneous
  Country: FR (occurrence: FR)
  Receive Date: 20130617
  Receipt Date: 20130617
  Transmission Date: 20140414
  Serious: Yes (Death)
  Sender: FDA-Public Use
  Company Number: FR-TEVA-412545ISR

PATIENT
  Age: 94 Year
  Sex: Male

DRUGS (1)
  1. FUROSEMIDE TEVA 40MG [Suspect]
     Dosage: 240 MILLIGRAM DAILY;
     Dates: start: 20130606

REACTIONS (2)
  - Acute pulmonary oedema [Fatal]
  - Off label use [Unknown]
